FAERS Safety Report 23217134 (Version 1)
Quarter: 2023Q4

REPORT INFORMATION
  Report Type: Spontaneous
  Country: PT (occurrence: PT)
  Receive Date: 20231122
  Receipt Date: 20231122
  Transmission Date: 20240109
  Serious: Yes (Hospitalization, Disabling)
  Sender: FDA-Public Use
  Company Number: None

PATIENT
  Age: 45 Year
  Sex: Female

DRUGS (11)
  1. TALTZ [Suspect]
     Active Substance: IXEKIZUMAB
     Indication: Psoriasis
     Dosage: 80 MG, OTHER (EVERY 4 WEEKS)
     Route: 058
     Dates: start: 20191101
  2. RIVOTRIL [Concomitant]
     Active Substance: CLONAZEPAM
     Indication: Product used for unknown indication
  3. BECLOMETASONA [BECLOMETASONE] [Concomitant]
     Indication: Product used for unknown indication
  4. XIGDUO XR [Concomitant]
     Active Substance: DAPAGLIFLOZIN PROPANEDIOL\METFORMIN HYDROCHLORIDE
     Indication: Product used for unknown indication
     Route: 048
  5. CYCLO 3 FORT [Concomitant]
     Active Substance: ASCORBIC ACID\HESPERIDIN METHYLCHALCONE\RUSCUS ACULEATUS ROOT
     Indication: Product used for unknown indication
     Route: 048
  6. BISOPROLOL [Concomitant]
     Active Substance: BISOPROLOL\BISOPROLOL FUMARATE
     Indication: Product used for unknown indication
  7. METAMIZOLE MAGNESIUM [Concomitant]
     Active Substance: METAMIZOLE MAGNESIUM
     Indication: Product used for unknown indication
     Route: 048
  8. AMIODARONE [Concomitant]
     Active Substance: AMIODARONE
     Indication: Product used for unknown indication
  9. BEN U RON [Concomitant]
     Indication: Product used for unknown indication
  10. XARELTO [Concomitant]
     Active Substance: RIVAROXABAN
     Indication: Product used for unknown indication
  11. SIMVASTATIN [Concomitant]
     Active Substance: SIMVASTATIN
     Indication: Product used for unknown indication

REACTIONS (2)
  - Chest wall abscess [Recovering/Resolving]
  - Arthritis bacterial [Recovering/Resolving]

NARRATIVE: CASE EVENT DATE: 20230215
